FAERS Safety Report 8774773 (Version 3)
Quarter: 2012Q4

REPORT INFORMATION
  Report Type: 
  Country: US (occurrence: US)
  Receive Date: 20120910
  Receipt Date: 20121029
  Transmission Date: 20130627
  Serious: Yes (Other)
  Sender: FDA-Public Use
  Company Number: US-PFIZER INC-2012220919

PATIENT
  Age: 67 Year
  Sex: Female
  Weight: 76.6 kg

DRUGS (2)
  1. PRISTIQ [Suspect]
     Indication: DEPRESSION
     Dosage: 50 mg, 1x/day
     Route: 048
     Dates: start: 2010
  2. LAMICTAL [Concomitant]
     Indication: CARDIAC DISORDER
     Dosage: UNK

REACTIONS (5)
  - Depression [Unknown]
  - Abnormal behaviour [Unknown]
  - Apathy [Unknown]
  - Cough [Unknown]
  - Malaise [Unknown]
